FAERS Safety Report 7998402-X (Version None)
Quarter: 2011Q4

REPORT INFORMATION
  Report Type: 
  Country: None (occurrence: None)
  Receive Date: 20111221
  Receipt Date: 20110926
  Transmission Date: 20120403
  Serious: No
  Sender: FDA-Public Use
  Company Number: US-GLAXOSMITHKLINE-A0946004A

PATIENT
  Age: 71 Year
  Sex: Female

DRUGS (17)
  1. NEXIUM [Concomitant]
  2. PRANDIN [Concomitant]
  3. ACTOPLUS MET [Concomitant]
  4. OYSTER CALCIUM [Concomitant]
  5. NAPROXEN [Concomitant]
  6. VICODIN ES [Concomitant]
  7. KLOR-CON [Concomitant]
  8. AVAPRO [Concomitant]
  9. LYRICA [Concomitant]
  10. LOVAZA [Suspect]
     Indication: BLOOD TRIGLYCERIDES INCREASED
     Dosage: 2CAP TWICE PER DAY
     Route: 048
     Dates: start: 20071101
  11. COLACE [Concomitant]
  12. LUMIGAN [Concomitant]
  13. CADUET [Concomitant]
  14. AZOPT [Concomitant]
  15. HYDROCHLOROTHIAZIDE [Concomitant]
  16. ASPIRIN [Concomitant]
  17. UNKNOWN MEDICATION [Concomitant]

REACTIONS (1)
  - BLOOD TRIGLYCERIDES INCREASED [None]
